FAERS Safety Report 6822025-9 (Version None)
Quarter: 2010Q3

REPORT INFORMATION
  Report Type: 
  Country: None (occurrence: None)
  Receive Date: 20100708
  Receipt Date: 20100701
  Transmission Date: 20110219
  Serious: Yes (Death, Hospitalization)
  Sender: FDA-Public Use
  Company Number: US-ASTRAZENECA-2007UW07751

PATIENT
  Age: 587 Month
  Sex: Male
  Weight: 92.1 kg

DRUGS (11)
  1. SEROQUEL [Suspect]
     Indication: ANXIETY
     Route: 048
     Dates: start: 20040301, end: 20040401
  2. SEROQUEL [Suspect]
     Indication: SLEEP DISORDER
     Route: 048
     Dates: start: 20040301, end: 20040401
  3. SEROQUEL [Suspect]
     Route: 048
     Dates: start: 20050226, end: 20050528
  4. SEROQUEL [Suspect]
     Route: 048
     Dates: start: 20050226, end: 20050528
  5. TENORMIN [Concomitant]
     Route: 048
     Dates: start: 20050927
  6. ALDACTONE [Concomitant]
     Route: 048
     Dates: start: 20050927
  7. ZESTRIL [Concomitant]
     Route: 048
     Dates: start: 20050927
  8. MOTRIN [Concomitant]
     Route: 048
     Dates: start: 20050927
  9. METFORMIN HCL [Concomitant]
     Route: 048
     Dates: start: 20061102
  10. ULTRAM [Concomitant]
     Route: 048
     Dates: start: 20061102
  11. FLEXERIL [Concomitant]
     Route: 048
     Dates: start: 20061102

REACTIONS (4)
  - DEATH [None]
  - DIABETES MELLITUS [None]
  - LOCALISED INFECTION [None]
  - TYPE 2 DIABETES MELLITUS [None]
